FAERS Safety Report 19748183 (Version 2)
Quarter: 2022Q1

REPORT INFORMATION
  Report Type: Spontaneous
  Country: US (occurrence: None)
  Receive Date: 20210825
  Receipt Date: 20220307
  Transmission Date: 20220423
  Serious: Yes (Death, Disabling, Other)
  Sender: FDA-Public Use
  Company Number: 2021A694781

PATIENT
  Age: 59 Year
  Sex: Female
  Weight: 54.9 kg

DRUGS (26)
  1. NEXIUM 24HR [Suspect]
     Active Substance: ESOMEPRAZOLE MAGNESIUM
     Indication: Dyspepsia
     Dosage: FOR VARIOUS DATES AND YEARS; 1 TIME DAILY
     Route: 048
  2. NEXIUM 24HR [Suspect]
     Active Substance: ESOMEPRAZOLE MAGNESIUM
     Indication: Gastrooesophageal reflux disease
     Dosage: FOR VARIOUS DATES AND YEARS; 1 TIME DAILY
     Route: 048
  3. NEXIUM 24HR [Suspect]
     Active Substance: ESOMEPRAZOLE MAGNESIUM
     Indication: Dyspepsia
     Dosage: FOR VARIOUS DATES AND YEARS; ONE TIME DAILY
     Route: 048
     Dates: start: 2005, end: 2017
  4. NEXIUM 24HR [Suspect]
     Active Substance: ESOMEPRAZOLE MAGNESIUM
     Indication: Gastrooesophageal reflux disease
     Dosage: FOR VARIOUS DATES AND YEARS; ONE TIME DAILY
     Route: 048
     Dates: start: 2005, end: 2017
  5. PRILOSEC OTC [Suspect]
     Active Substance: OMEPRAZOLE MAGNESIUM
     Indication: Dyspepsia
     Dosage: FOR VARIOUS DATES AND YEARS; 1 TIME DAILY
     Route: 048
  6. PRILOSEC OTC [Suspect]
     Active Substance: OMEPRAZOLE MAGNESIUM
     Indication: Gastrooesophageal reflux disease
     Dosage: FOR VARIOUS DATES AND YEARS; 1 TIME DAILY
     Route: 048
  7. PRILOSEC OTC [Suspect]
     Active Substance: OMEPRAZOLE MAGNESIUM
     Indication: Dyspepsia
     Dosage: FOR VARIOUS DATES AND YEARS; 1 TIME DAILY
     Route: 048
     Dates: start: 2015, end: 2017
  8. PRILOSEC OTC [Suspect]
     Active Substance: OMEPRAZOLE MAGNESIUM
     Indication: Gastrooesophageal reflux disease
     Dosage: FOR VARIOUS DATES AND YEARS; 1 TIME DAILY
     Route: 048
     Dates: start: 2015, end: 2017
  9. PREVACID 24 HR [Suspect]
     Active Substance: LANSOPRAZOLE
     Indication: Gastrooesophageal reflux disease
     Dosage: FOR VARIOUS DATES AND YEARS; 1 TIME DAILY
     Route: 065
     Dates: start: 2007, end: 2015
  10. PREVACID 24 HR [Suspect]
     Active Substance: LANSOPRAZOLE
     Indication: Dyspepsia
     Dosage: FOR VARIOUS DATES AND YEARS; 1 TIME DAILY
     Route: 065
     Dates: start: 2007, end: 2015
  11. PANTOPRAZOLE [Suspect]
     Active Substance: PANTOPRAZOLE
     Indication: Gastrooesophageal reflux disease
     Dosage: TWO TIMES DAILY
     Route: 065
     Dates: start: 2020
  12. PANTOPRAZOLE [Suspect]
     Active Substance: PANTOPRAZOLE
     Indication: Dyspepsia
     Dosage: TWO TIMES DAILY
     Route: 065
     Dates: start: 2020
  13. TRAMADOL [Concomitant]
     Active Substance: TRAMADOL
     Indication: Pain
     Dates: start: 2019
  14. PEPCID [Concomitant]
     Active Substance: FAMOTIDINE
     Dates: start: 1990, end: 2020
  15. ZANTAC [Concomitant]
     Active Substance: RANITIDINE HYDROCHLORIDE
     Dates: start: 1999, end: 2020
  16. TUMS [Concomitant]
     Active Substance: CALCIUM CARBONATE
     Dates: start: 1990, end: 2020
  17. AMLODIPINE [Concomitant]
     Active Substance: AMLODIPINE BESYLATE
     Dates: start: 1999, end: 2020
  18. ONDANSETRON [Concomitant]
     Active Substance: ONDANSETRON
     Dates: start: 1999, end: 2020
  19. MORPHINE [Concomitant]
     Active Substance: MORPHINE
     Dates: start: 1999, end: 2020
  20. PROCHLORPERAZINE [Concomitant]
     Active Substance: PROCHLORPERAZINE
     Dates: start: 1999, end: 2020
  21. ELTROMBOPAG [Concomitant]
     Active Substance: ELTROMBOPAG
     Dates: start: 1999, end: 2020
  22. MIRTAZAPINE [Concomitant]
     Active Substance: MIRTAZAPINE
     Dates: start: 1999, end: 2020
  23. BISACODYL [Concomitant]
     Active Substance: BISACODYL
     Dates: start: 1999, end: 2020
  24. DEXAMETHASONE [Concomitant]
     Active Substance: DEXAMETHASONE
     Dates: start: 1999, end: 2020
  25. LEVETIRACETAM [Concomitant]
     Active Substance: LEVETIRACETAM
     Dates: start: 1999, end: 2020
  26. ZOFRAN [Concomitant]
     Active Substance: ONDANSETRON HYDROCHLORIDE
     Dates: start: 1999, end: 2020

REACTIONS (7)
  - Gastrointestinal stromal tumour [Fatal]
  - Gastric cancer stage IV [Unknown]
  - Metastasis [Unknown]
  - Metastases to central nervous system [Unknown]
  - Metastases to lung [Unknown]
  - Pain [Unknown]
  - Gastric polyps [Unknown]

NARRATIVE: CASE EVENT DATE: 20170101
